FAERS Safety Report 5045043-2 (Version None)
Quarter: 2006Q3

REPORT INFORMATION
  Report Type: 
  Country: None (occurrence: None)
  Receive Date: 20060705
  Receipt Date: 20060613
  Transmission Date: 20061208
  Serious: Yes (Hospitalization)
  Sender: FDA-Public Use
  Company Number: US200606003029

PATIENT
  Age: 72 Year
  Sex: Female
  Weight: 51.7 kg

DRUGS (2)
  1. HUMALOG PEN [Suspect]
     Indication: DIABETES MELLITUS
     Dosage: AS NEEDED,
     Dates: start: 20020101
  2. ANTIHYPERTENSIVE AGENT (ANTIHYPERTENSIVE AGENT) [Concomitant]

REACTIONS (6)
  - ANXIETY [None]
  - BLOOD GLUCOSE DECREASED [None]
  - BLOOD GLUCOSE INCREASED [None]
  - LUNG CANCER METASTATIC [None]
  - PHARMACEUTICAL PRODUCT COMPLAINT [None]
  - WEIGHT DECREASED [None]
